FAERS Safety Report 10301579 (Version 2)
Quarter: 2014Q3

REPORT INFORMATION
  Report Type: Report from Study
  Country: CR (occurrence: CR)
  Receive Date: 20140714
  Receipt Date: 20140714
  Transmission Date: 20150326
  Serious: Yes (Other)
  Sender: FDA-Public Use
  Company Number: CR-US-EMD SERONO, INC.-7238467

PATIENT
  Age: 60 Year
  Sex: Male
  Weight: 70 kg

DRUGS (5)
  1. REBIF [Suspect]
     Active Substance: INTERFERON BETA-1A
     Indication: MULTIPLE SCLEROSIS
     Dates: end: 20130912
  2. PROPANOL                           /00030001/ [Concomitant]
     Indication: INFLAMMATION
     Dosage: ONE TABLET
  3. PAXIL [Concomitant]
     Active Substance: PAROXETINE HYDROCHLORIDE
     Indication: PRODUCT USED FOR UNKNOWN INDICATION
     Dosage: 1 (UNSPECIFIED UNIT)
  4. IRBESARTAN. [Concomitant]
     Active Substance: IRBESARTAN
     Indication: HYPERTENSION
     Dosage: 150 (UNSPECIFIED UNIT)
  5. REBIF [Suspect]
     Active Substance: INTERFERON BETA-1A

REACTIONS (6)
  - Injection site cellulitis [Not Recovered/Not Resolved]
  - Drug intolerance [Unknown]
  - Bone pain [Not Recovered/Not Resolved]
  - Hypersensitivity [Recovering/Resolving]
  - Skin reaction [Unknown]
  - Panniculitis [Not Recovered/Not Resolved]

NARRATIVE: CASE EVENT DATE: 20130912
